FAERS Safety Report 9778848 (Version 2)
Quarter: 2014Q1

REPORT INFORMATION
  Report Type: Spontaneous
  Country: SE (occurrence: SE)
  Receive Date: 20131223
  Receipt Date: 20140121
  Transmission Date: 20141002
  Serious: Yes (Hospitalization)
  Sender: FDA-Public Use
  Company Number: SE-JNJFOC-20131211139

PATIENT
  Age: 64 Year
  Sex: Male

DRUGS (3)
  1. SIMPONI [Suspect]
     Indication: PSORIATIC ARTHROPATHY
     Route: 058
     Dates: start: 20110712, end: 20130305
  2. METHOTREXATE [Concomitant]
     Route: 065
     Dates: start: 20080917
  3. PREDNISOLONE [Concomitant]
     Route: 065
     Dates: start: 20110331

REACTIONS (2)
  - Papillary tumour of renal pelvis [Not Recovered/Not Resolved]
  - Squamous cell carcinoma of skin [Not Recovered/Not Resolved]
